FAERS Safety Report 24457649 (Version 1)
Quarter: 2024Q4

REPORT INFORMATION
  Report Type: Report from Study
  Country: US (occurrence: US)
  Receive Date: 20241018
  Receipt Date: 20241018
  Transmission Date: 20250114
  Serious: No
  Sender: ROCHE
  Company Number: US-ROCHE-3443684

PATIENT
  Age: 41 Year
  Sex: Female

DRUGS (3)
  1. CATHFLO ACTIVASE [Suspect]
     Active Substance: ALTEPLASE
     Indication: Pulmonary gangrene
     Dosage: DATE OF SERVICE: 21/SEP/2023, 22/SEP/2023, 23/SEP/2023, 24/SEP/2023
     Route: 065
  2. CATHFLO ACTIVASE [Suspect]
     Active Substance: ALTEPLASE
     Indication: Pulmonary necrosis
     Route: 065
  3. AUGMENTIN [Concomitant]
     Active Substance: AMOXICILLIN\CLAVULANATE POTASSIUM

REACTIONS (2)
  - Off label use [Unknown]
  - No adverse event [Unknown]
